FAERS Safety Report 9551041 (Version 1)
Quarter: 2013Q3

REPORT INFORMATION
  Report Type: Report from Study
  Country: NL (occurrence: NL)
  Receive Date: 20130925
  Receipt Date: 20130925
  Transmission Date: 20140515
  Serious: Yes (Hospitalization)
  Sender: FDA-Public Use
  Company Number: NL-ROCHE-1276471

PATIENT
  Age: 70 Year
  Sex: Female

DRUGS (4)
  1. EPIRUBICIN [Suspect]
     Indication: GASTRIC CANCER
     Dosage: DATE OF LAST TREAMTMENT: 05/SEP/2013 PRIOR TO EVENT.
     Route: 042
     Dates: start: 20130905
  2. CAPECITABINE [Suspect]
     Indication: GASTRIC CANCER
     Dosage: DATE OF LAST TREATMENT: 11/SEP/2013,
     Route: 048
     Dates: start: 20130905
  3. CISPLATIN [Suspect]
     Indication: GASTRIC CANCER
     Dosage: DATE OF LAST LAST TREATMENT: 05/SEP/2013
     Route: 042
     Dates: start: 20130905
  4. METOCLOPRAMIDE [Concomitant]
     Route: 065
     Dates: start: 20130905

REACTIONS (1)
  - Gastric perforation [Recovered/Resolved]
